FAERS Safety Report 14018519 (Version 3)
Quarter: 2018Q2

REPORT INFORMATION
  Report Type: Spontaneous
  Country: FR (occurrence: FR)
  Receive Date: 20170928
  Receipt Date: 20180515
  Transmission Date: 20180711
  Serious: Yes (Other)
  Sender: FDA-Public Use
  Company Number: FR-MERCK KGAA-2027997

PATIENT
  Age: 53 Year
  Sex: Female
  Weight: 140 kg

DRUGS (1)
  1. NOVOTHYROX [Suspect]
     Active Substance: LEVOTHYROXINE SODIUM
     Indication: THYROIDECTOMY
     Route: 048

REACTIONS (22)
  - Depression [None]
  - Gait disturbance [Not Recovered/Not Resolved]
  - Weight increased [Not Recovered/Not Resolved]
  - Sleep disorder [Recovered/Resolved]
  - High density lipoprotein decreased [None]
  - Crying [None]
  - Nausea [None]
  - Loss of personal independence in daily activities [None]
  - Diarrhoea [Not Recovered/Not Resolved]
  - Dizziness [None]
  - Muscle spasms [None]
  - Disturbance in attention [Not Recovered/Not Resolved]
  - Hyperhidrosis [Not Recovered/Not Resolved]
  - Amnesia [Not Recovered/Not Resolved]
  - Headache [None]
  - Vertigo [Not Recovered/Not Resolved]
  - Arthralgia [Not Recovered/Not Resolved]
  - Fatigue [Not Recovered/Not Resolved]
  - Malaise [None]
  - Pain in extremity [None]
  - Anxiety [None]
  - Pain [None]

NARRATIVE: CASE EVENT DATE: 201703
